FAERS Safety Report 19791383 (Version 5)
Quarter: 2021Q4

REPORT INFORMATION
  Report Type: Spontaneous
  Country: JP (occurrence: JP)
  Receive Date: 20210906
  Receipt Date: 20211108
  Transmission Date: 20220303
  Serious: Yes (Hospitalization, Other)
  Sender: FDA-Public Use
  Company Number: JP-NOVOPROD-842657

PATIENT
  Age: 8 Year
  Sex: Female
  Weight: 22.4 kg

DRUGS (3)
  1. NORDITROPIN [Suspect]
     Active Substance: SOMATROPIN
     Indication: Noonan syndrome
     Dosage: 0.7 MG, QD
     Route: 058
     Dates: start: 20210608, end: 20210629
  2. NORDITROPIN [Suspect]
     Active Substance: SOMATROPIN
     Indication: Short stature
  3. BISOPROLOL FUMARATE [Concomitant]
     Active Substance: BISOPROLOL FUMARATE
     Indication: Hypertrophic cardiomyopathy
     Dosage: UNK
     Route: 048

REACTIONS (7)
  - Hypertrophic cardiomyopathy [Recovering/Resolving]
  - Condition aggravated [Recovering/Resolving]
  - Syncope [Unknown]
  - Right ventricle outflow tract obstruction [Unknown]
  - Condition aggravated [Unknown]
  - Left ventricle outflow tract obstruction [Recovering/Resolving]
  - Condition aggravated [Recovering/Resolving]

NARRATIVE: CASE EVENT DATE: 20210627
